FAERS Safety Report 5333244-5 (Version None)
Quarter: 2007Q2

REPORT INFORMATION
  Report Type: 
  Country: None (occurrence: None)
  Receive Date: 20070306
  Receipt Date: 20061114
  Transmission Date: 20071010
  Serious: Yes (Other)
  Sender: FDA-Public Use
  Company Number: A03200606882

PATIENT
  Age: 60 Year
  Sex: Male
  Weight: 77.1 kg

DRUGS (7)
  1. PLAVIX [Suspect]
     Indication: STENT PLACEMENT
     Dosage: 75 MG QD - ORAL
     Route: 048
     Dates: start: 20000101
  2. ISOSORBIDE DINITRATE [Concomitant]
  3. HYDROCHLOROTHIAZIDE [Concomitant]
  4. FELODIPINE [Concomitant]
  5. TAMSULOSIN HCL [Concomitant]
  6. ROSIGLITAZONE MALEATE [Concomitant]
  7. FINASTERIDE [Concomitant]

REACTIONS (4)
  - BLOOD URINE PRESENT [None]
  - CORONARY ARTERY OCCLUSION [None]
  - DRUG INEFFECTIVE [None]
  - HAEMORRHOIDAL HAEMORRHAGE [None]
